FAERS Safety Report 12085380 (Version 1)
Quarter: 2016Q1

REPORT INFORMATION
  Report Type: Spontaneous
  Country: CH (occurrence: CH)
  Receive Date: 20160217
  Receipt Date: 20160217
  Transmission Date: 20160526
  Serious: Yes (Hospitalization, Other)
  Sender: FDA-Public Use
  Company Number: CH-TEVA-634148ISR

PATIENT
  Age: 78 Year
  Sex: Male

DRUGS (1)
  1. PANTOPRAZOL-MEPHA LACTABS [Suspect]
     Active Substance: PANTOPRAZOLE SODIUM
     Indication: OESOPHAGITIS
     Dosage: 40 MILLIGRAM DAILY;
     Route: 065

REACTIONS (8)
  - Cerebral haemorrhage [Unknown]
  - Cognitive disorder [Unknown]
  - Aphasia [Unknown]
  - Deep vein thrombosis [Unknown]
  - Hemianopia [Unknown]
  - Epilepsy [Unknown]
  - Pneumonia [Unknown]
  - Pulmonary embolism [Unknown]

NARRATIVE: CASE EVENT DATE: 201412
